FAERS Safety Report 18796921 (Version 1)
Quarter: 2021Q1

REPORT INFORMATION
  Report Type: Report from Study
  Country: ZA (occurrence: ZA)
  Receive Date: 20210127
  Receipt Date: 20210127
  Transmission Date: 20210419
  Serious: Yes (Life-Threatening, Other)
  Sender: FDA-Public Use
  Company Number: NVSC2021ZA018025

PATIENT
  Sex: Male

DRUGS (5)
  1. CARLOC [Concomitant]
     Active Substance: CARVEDILOL
     Indication: PRODUCT USED FOR UNKNOWN INDICATION
     Dosage: 6.25 MG, QD
     Route: 065
  2. LASIX [Concomitant]
     Active Substance: FUROSEMIDE
     Indication: PRODUCT USED FOR UNKNOWN INDICATION
     Dosage: 40 MG, QD
     Route: 065
  3. SPIRACTIN [Concomitant]
     Indication: PRODUCT USED FOR UNKNOWN INDICATION
     Dosage: 25 MG, QD
     Route: 065
  4. SLOW?K [Suspect]
     Active Substance: POTASSIUM CHLORIDE
     Indication: CARDIAC FAILURE
     Dosage: 600 MG, QD
     Route: 048
  5. ENAP [Concomitant]
     Active Substance: ENALAPRIL
     Indication: PRODUCT USED FOR UNKNOWN INDICATION
     Dosage: 10 MG, QD
     Route: 065

REACTIONS (9)
  - Cardiac failure [Unknown]
  - Orthopnoea [Unknown]
  - N-terminal prohormone brain natriuretic peptide increased [Unknown]
  - Gait inability [Unknown]
  - Chest pain [Unknown]
  - Fatigue [Unknown]
  - Dyspnoea [Unknown]
  - Myocardial infarction [Unknown]
  - Dizziness [Unknown]

NARRATIVE: CASE EVENT DATE: 2018
